FAERS Safety Report 10213419 (Version 2)
Quarter: 2014Q3

REPORT INFORMATION
  Report Type: Spontaneous
  Country: CH (occurrence: None)
  Receive Date: 20140529
  Receipt Date: 20140702
  Transmission Date: 20150326
  Serious: Yes (Hospitalization, Other)
  Sender: FDA-Public Use
  Company Number: 20140296

PATIENT
  Age: 85 Year
  Sex: Female

DRUGS (14)
  1. NORVASC [Concomitant]
     Active Substance: AMLODIPINE BESYLATE
  2. PERFALGAN [Concomitant]
     Active Substance: ACETAMINOPHEN
  3. SEREVENT [Concomitant]
     Active Substance: SALMETEROL XINAFOATE
  4. HYDAL RETARD [Concomitant]
     Active Substance: HYDROMORPHONE HYDROCHLORIDE
  5. NOMEXOR [Concomitant]
     Active Substance: NEBIVOLOL HYDROCHLORIDE
  6. MUTAN (FLUOXETINE HYDROCHLORIDE) [Concomitant]
     Active Substance: FLUOXETINE HYDROCHLORIDE
  7. LASIX [Concomitant]
     Active Substance: FUROSEMIDE
  8. HYDROMORPHONE [Concomitant]
     Active Substance: HYDROMORPHONE
  9. TRITTICO RETARD [Concomitant]
     Active Substance: TRAZODONE HYDROCHLORIDE
  10. UROSIN (ALLOPURINOL) [Concomitant]
     Active Substance: ALLOPURINOL
  11. FERINJECT [Suspect]
     Active Substance: FERRIC CARBOXYMALTOSE
     Indication: IRON DEFICIENCY
     Dosage: 500MG/100ML 0.95NACL
     Dates: start: 20140430, end: 20140430
  12. ACEMIN [Concomitant]
     Active Substance: LISINOPRIL
  13. CLINDAMYCIN [Concomitant]
     Active Substance: CLINDAMYCIN\CLINDAMYCIN PHOSPHATE
  14. T ASS (ACETYLSALICYLIC ACID) [Concomitant]
     Active Substance: ASPIRIN

REACTIONS (2)
  - Anaphylactic reaction [None]
  - Toxic epidermal necrolysis [None]

NARRATIVE: CASE EVENT DATE: 20140501
